FAERS Safety Report 12986255 (Version 2)
Quarter: 2016Q4

REPORT INFORMATION
  Report Type: Report from Study
  Country: CA (occurrence: CA)
  Receive Date: 20161130
  Receipt Date: 20161209
  Transmission Date: 20170207
  Serious: Yes (Death, Hospitalization)
  Sender: FDA-Public Use
  Company Number: CA-IPSEN BIOPHARMACEUTICALS, INC.-2016-10249

PATIENT
  Age: 50 Year
  Sex: Male

DRUGS (11)
  1. PRISTIQ EXTENDED-RELEASE [Concomitant]
     Active Substance: DESVENLAFAXINE SUCCINATE
     Route: 048
  2. PANCREOLIPASE [Concomitant]
     Dosage: TAKEN DURING MEALS
  3. HYDROMORPHONE [Concomitant]
     Active Substance: HYDROMORPHONE
     Route: 048
  4. ONDANSETRON [Concomitant]
     Active Substance: ONDANSETRON
     Route: 048
  5. METFORMIN [Concomitant]
     Active Substance: METFORMIN HYDROCHLORIDE
     Route: 048
  6. SHORT ACTING INSULIN [Concomitant]
     Active Substance: INSULIN NOS
     Route: 058
  7. SULFATRIM [Concomitant]
     Active Substance: SULFAMETHOXAZOLE\TRIMETHOPRIM
     Dosage: 800 MG/160 MG
     Route: 048
     Dates: start: 2016, end: 20161121
  8. SOMATULINE AUTOGEL [Suspect]
     Active Substance: LANREOTIDE ACETATE
     Indication: NEUROENDOCRINE TUMOUR
     Dosage: 120 MG
     Route: 058
     Dates: start: 20160610, end: 20161126
  9. WELLBUTRIN [Concomitant]
     Active Substance: BUPROPION HYDROCHLORIDE
     Route: 048
  10. PANTOLOC [Concomitant]
     Active Substance: PANTOPRAZOLE SODIUM
     Route: 048
  11. SENOKOT [Concomitant]
     Active Substance: SENNOSIDES
     Dosage: AS NEEDED
     Route: 048

REACTIONS (4)
  - Peripheral swelling [Not Recovered/Not Resolved]
  - Disease progression [Fatal]
  - Abdominal pain [Not Recovered/Not Resolved]
  - Abdominal distension [Not Recovered/Not Resolved]

NARRATIVE: CASE EVENT DATE: 20161123
